FAERS Safety Report 11481647 (Version 2)
Quarter: 2015Q3

REPORT INFORMATION
  Report Type: Spontaneous
  Country: US (occurrence: US)
  Receive Date: 20150903
  Receipt Date: 20150903
  Transmission Date: 20151125
  Serious: No
  Sender: FDA-Public Use
  Company Number: US-ELI_LILLY_AND_COMPANY-US201202004425

PATIENT
  Age: 37 Year
  Sex: Female

DRUGS (7)
  1. OXYCODONE [Concomitant]
     Active Substance: OXYCODONE
  2. LOVASTATIN. [Concomitant]
     Active Substance: LOVASTATIN
  3. CYMBALTA [Suspect]
     Active Substance: DULOXETINE HYDROCHLORIDE
     Indication: DEPRESSION
     Dosage: 30 MG, BID
     Dates: end: 20111227
  4. LISOPRIL [Concomitant]
     Active Substance: LISINOPRIL
  5. OPANA [Concomitant]
     Active Substance: OXYMORPHONE HYDROCHLORIDE
  6. CYMBALTA [Suspect]
     Active Substance: DULOXETINE HYDROCHLORIDE
     Dosage: 60 MG, QD
  7. JANUMET [Concomitant]
     Active Substance: METFORMIN HYDROCHLORIDE\SITAGLIPTIN PHOSPHATE

REACTIONS (2)
  - Dry skin [Not Recovered/Not Resolved]
  - Blister [Not Recovered/Not Resolved]
